FAERS Safety Report 8797679 (Version 2)
Quarter: 2012Q4

REPORT INFORMATION
  Report Type: 
  Country: MY (occurrence: MY)
  Receive Date: 20120920
  Receipt Date: 20121001
  Transmission Date: 20130627
  Serious: Yes (Hospitalization, Other)
  Sender: FDA-Public Use
  Company Number: PHHY2012MY081392

PATIENT
  Age: 11 Year
  Sex: Male
  Weight: 33 kg

DRUGS (8)
  1. EXJADE [Suspect]
     Indication: IRON OVERLOAD
     Dosage: 750 mg, OD mixing with drinking water
  2. EXJADE [Suspect]
     Dosage: 500 mg, OD mixing with drinking water
  3. DEFERIPRONE [Concomitant]
  4. FOLIC ACID [Concomitant]
  5. VITAMIN C [Concomitant]
  6. PENICILLIN [Concomitant]
  7. ANTIHISTAMINES [Concomitant]
  8. KELFER [Concomitant]

REACTIONS (8)
  - Rash [Unknown]
  - Conjunctivitis [Unknown]
  - Blood pressure decreased [Unknown]
  - Stevens-Johnson syndrome [Unknown]
  - Lip swelling [Unknown]
  - Pyrexia [Unknown]
  - Generalised erythema [Unknown]
  - Drug hypersensitivity [Unknown]
